FAERS Safety Report 18486292 (Version 1)
Quarter: 2020Q4

REPORT INFORMATION
  Report Type: Spontaneous
  Country: US (occurrence: US)
  Receive Date: 20201110
  Receipt Date: 20201110
  Transmission Date: 20210114
  Serious: Yes (Other)
  Sender: FDA-Public Use
  Company Number: US-ENDO PHARMACEUTICALS INC-2020-007136

PATIENT
  Sex: Female

DRUGS (1)
  1. PHENOXYBENZAMINE HYDROCHLORIDE. [Suspect]
     Active Substance: PHENOXYBENZAMINE HYDROCHLORIDE
     Indication: PHAEOCHROMOCYTOMA
     Dosage: UNK UNKNOWN, UNKNOWN
     Route: 065

REACTIONS (1)
  - Paraganglion neoplasm [Unknown]
